FAERS Safety Report 14978427 (Version 1)
Quarter: 2018Q2

REPORT INFORMATION
  Report Type: Spontaneous
  Country: US (occurrence: US)
  Receive Date: 20180515
  Receipt Date: 20180515
  Transmission Date: 20180711
  Serious: Yes (Hospitalization)
  Sender: FDA-Public Use
  Company Number: None

PATIENT
  Age: 73 Year
  Sex: Male
  Weight: 54 kg

DRUGS (9)
  1. ASPIRIN. [Concomitant]
     Active Substance: ASPIRIN
  2. NITROGLYCERIN (NITROSTAT) [Concomitant]
  3. INSULIN LISPRO PROTAMINE-INSULIN LISPRO (HUMALOG MIX) [Concomitant]
  4. ROXICODONE [Concomitant]
     Active Substance: OXYCODONE HYDROCHLORIDE
  5. LISINOPRIL (ZESTRIL) [Concomitant]
  6. DAYENOXAPARIN (LOVENOX) [Concomitant]
  7. METOPROLOL TARTRATE (LOPRESSOR) [Concomitant]
  8. STIVARGA [Suspect]
     Active Substance: REGORAFENIB
     Route: 048
  9. NIACIN. [Concomitant]
     Active Substance: NIACIN

REACTIONS (11)
  - Head injury [None]
  - Dehydration [None]
  - Mental disorder [None]
  - Fatigue [None]
  - Fall [None]
  - Asthenia [None]
  - Diarrhoea [None]
  - Gait disturbance [None]
  - Malnutrition [None]
  - Cough [None]
  - Febrile neutropenia [None]

NARRATIVE: CASE EVENT DATE: 20171101
